FAERS Safety Report 23378918 (Version 1)
Quarter: 2024Q1

REPORT INFORMATION
  Report Type: Report from Study
  Country: US (occurrence: US)
  Receive Date: 20240108
  Receipt Date: 20240108
  Transmission Date: 20240409
  Serious: Yes (Other)
  Sender: FDA-Public Use
  Company Number: US-JNJFOC-20231277595

PATIENT
  Age: 71 Year
  Sex: Male

DRUGS (1)
  1. BALVERSA [Suspect]
     Active Substance: ERDAFITINIB
     Indication: Malignant neoplasm of renal pelvis
     Route: 048
     Dates: end: 20230712

REACTIONS (3)
  - Adverse drug reaction [Unknown]
  - Malignant neoplasm of renal pelvis [Unknown]
  - Off label use [Unknown]

NARRATIVE: CASE EVENT DATE: 20231228
